FAERS Safety Report 4314029-5 (Version None)
Quarter: 2004Q1

REPORT INFORMATION
  Report Type: 
  Country: None (occurrence: None)
  Receive Date: 20040305
  Receipt Date: 20040226
  Transmission Date: 20041129
  Serious: Yes (Hospitalization)
  Sender: FDA-Public Use
  Company Number: JP-JNJFOC-20040205940

PATIENT
  Age: 84 Year
  Sex: Male

DRUGS (13)
  1. LEVOFLOXACIN [Suspect]
     Indication: BRONCHITIS
     Dosage: 500 MG, 1 IN 1 DAY, ORAL
     Route: 048
     Dates: start: 20031225
  2. ZOXAN (DOXAZOSIN MESILATE) [Suspect]
     Dosage: 4 MG, ORAL
     Route: 048
     Dates: start: 20011115, end: 20031229
  3. DOGMATIL (SULPIRIDE) CAPSULES [Suspect]
     Dosage: 50 MG, ORAL
     Route: 048
     Dates: start: 20011115, end: 20031229
  4. POLY-KARAYA (POLY-KARAYA) [Concomitant]
  5. MOVICOL (NULYTELY) [Concomitant]
  6. EDUCTYL (EDUCTYL) [Concomitant]
  7. SURBRONC (AMBROXOL HYDROCHLORIDE) [Concomitant]
  8. STILNOX (ZOLPIDEM) [Concomitant]
  9. RHINOFLUIMUCIL (RHINOFLUIMUCIL) [Concomitant]
  10. CALYPTOL (CALYPTOL) [Concomitant]
  11. IMOVANE (ZOPICLONE) [Concomitant]
  12. DEBRIDAT (TRIMEBUTINE MALEATE) [Concomitant]
  13. OGAST (LANSOPRAZOLE) [Concomitant]

REACTIONS (7)
  - AMNESIA [None]
  - ATRIOVENTRICULAR BLOCK FIRST DEGREE [None]
  - BLOOD PRESSURE DECREASED [None]
  - DEPRESSED LEVEL OF CONSCIOUSNESS [None]
  - DRUG INTERACTION [None]
  - FALL [None]
  - ORTHOSTATIC HYPOTENSION [None]
